FAERS Safety Report 9219551 (Version 1)
Quarter: 2013Q2

REPORT INFORMATION
  Report Type: Spontaneous
  Country: US (occurrence: None)
  Receive Date: 20130405
  Receipt Date: 20130405
  Transmission Date: 20140414
  Serious: Yes (Death, Other)
  Sender: FDA-Public Use
  Company Number: 2013P1004289

PATIENT
  Sex: 0

DRUGS (2)
  1. FENTANYL [Suspect]
     Indication: COMPLETED SUICIDE
     Route: 062
  2. UNSPECIFIED MEDICATIONS [Suspect]
     Indication: COMPLETED SUICIDE

REACTIONS (2)
  - Completed suicide [None]
  - Toxicity to various agents [None]
